FAERS Safety Report 7479879-5 (Version None)
Quarter: 2011Q2

REPORT INFORMATION
  Report Type: 
  Country: None (occurrence: None)
  Receive Date: 20110515
  Receipt Date: 20100413
  Transmission Date: 20111010
  Serious: No
  Sender: FDA-Public Use
  Company Number: US-NOVEN-ALL1-2010-02203

PATIENT

DRUGS (4)
  1. DAYTRANA [Suspect]
     Dosage: UNK MG,(CUT AND APPLIED 3/4 OF A 20MG PATCH) 1X/DAY:QD
     Route: 062
     Dates: start: 20100408
  2. METHYLIN [Concomitant]
     Dosage: UNK MG, 1X/DAY:QD
     Route: 048
     Dates: start: 20100901
  3. DAYTRANA [Suspect]
     Dosage: 20 MG, 1X/DAY:QD
     Route: 062
     Dates: start: 20100406, end: 20100407
  4. DAYTRANA [Suspect]
     Dosage: UNK MG, (CUT 20MG PATCH AND APPLIED 1/2) 1X/DAY:QD
     Route: 062
     Dates: start: 20100403, end: 20100405

REACTIONS (7)
  - DRUG PRESCRIBING ERROR [None]
  - WRONG TECHNIQUE IN DRUG USAGE PROCESS [None]
  - PSYCHOMOTOR HYPERACTIVITY [None]
  - IRRITABILITY [None]
  - AGGRESSION [None]
  - ANGER [None]
  - NEGATIVISM [None]
